FAERS Safety Report 21967584 (Version 1)
Quarter: 2023Q1

REPORT INFORMATION
  Report Type: Spontaneous
  Country: US (occurrence: None)
  Receive Date: 20230207
  Receipt Date: 20230207
  Transmission Date: 20230418
  Serious: No
  Sender: FDA-Public Use
  Company Number: None

PATIENT
  Sex: Female

DRUGS (1)
  1. DIMETHYL FUMARATE [Suspect]
     Active Substance: DIMETHYL FUMARATE
     Indication: Multiple sclerosis
     Dosage: 240MG DAILY ORAL?
     Route: 048
     Dates: start: 201901

REACTIONS (6)
  - Therapy change [None]
  - Neuralgia [None]
  - Condition aggravated [None]
  - Balance disorder [None]
  - Headache [None]
  - Urinary incontinence [None]
